FAERS Safety Report 21988230 (Version 1)
Quarter: 2023Q1

REPORT INFORMATION
  Report Type: Spontaneous
  Country: CH (occurrence: CH)
  Receive Date: 20230214
  Receipt Date: 20230214
  Transmission Date: 20230418
  Serious: Yes (Other)
  Sender: FDA-Public Use
  Company Number: CH-SUN PHARMACEUTICAL INDUSTRIES LTD-2023R1-377563

PATIENT
  Age: 59 Year
  Sex: Male

DRUGS (2)
  1. PREDNISONE [Suspect]
     Active Substance: PREDNISONE
     Indication: Aortitis
     Dosage: 5 MILLIGRAM, QD
     Route: 065
  2. TOCILIZUMAB [Suspect]
     Active Substance: TOCILIZUMAB
     Indication: Aortitis
     Dosage: 600 MILLIGRAM,4 WEEKS, SINCE JUNE 2017, THEN EVERY 8 WEEKS SINCE JANUARY 2018
     Route: 065

REACTIONS (3)
  - C-reactive protein increased [Unknown]
  - Thrombocytopenia [Unknown]
  - Plasmodium falciparum infection [Unknown]
